FAERS Safety Report 10504682 (Version 6)
Quarter: 2015Q2

REPORT INFORMATION
  Report Type: Spontaneous
  Country: US (occurrence: US)
  Receive Date: 20141008
  Receipt Date: 20150424
  Transmission Date: 20150821
  Serious: Yes (Other)
  Sender: FDA-Public Use
  Company Number: US-BAYER-2014-144929

PATIENT
  Age: 35 Year
  Sex: Female
  Weight: 54.88 kg

DRUGS (1)
  1. MIRENA [Suspect]
     Active Substance: LEVONORGESTREL
     Indication: CONTRACEPTION
     Dosage: 20 MCG/24HR, CONT
     Route: 015
     Dates: start: 20140902, end: 20140902

REACTIONS (4)
  - Off label use [None]
  - Uterine perforation [Recovered/Resolved]
  - Device difficult to use [None]
  - Pelvic fluid collection [None]

NARRATIVE: CASE EVENT DATE: 20140902
